FAERS Safety Report 9473847 (Version 1)
Quarter: 2013Q3

REPORT INFORMATION
  Report Type: Spontaneous
  Country: US (occurrence: US)
  Receive Date: 20130823
  Receipt Date: 20130823
  Transmission Date: 20140515
  Serious: Yes (Other)
  Sender: FDA-Public Use
  Company Number: US-BRISTOL-MYERS SQUIBB COMPANY-17048745

PATIENT
  Age: 37 Year
  Sex: Female
  Weight: 58.05 kg

DRUGS (2)
  1. SPRYCEL [Suspect]
     Indication: CHRONIC MYELOID LEUKAEMIA
     Route: 048
     Dates: start: 20121003
  2. FLUCONAZOLE [Concomitant]

REACTIONS (6)
  - Pain in extremity [Recovering/Resolving]
  - Candida infection [Not Recovered/Not Resolved]
  - Stomatitis [Unknown]
  - Anaemia [Unknown]
  - Diarrhoea [Not Recovered/Not Resolved]
  - Rash [Recovered/Resolved]
